FAERS Safety Report 4273102-0 (Version None)
Quarter: 2004Q1

REPORT INFORMATION
  Report Type: 
  Country: None (occurrence: None)
  Receive Date: 20040114
  Receipt Date: 20031229
  Transmission Date: 20041129
  Serious: Yes (Death, Hospitalization)
  Sender: FDA-Public Use
  Company Number: DSA_23804_2004

PATIENT
  Age: 82 Year
  Sex: Female

DRUGS (4)
  1. MONO-TILDIEM LP [Suspect]
     Indication: HYPERTENSION
     Dosage: 300 MG Q DAY PO
     Route: 048
     Dates: start: 20030712, end: 20030712
  2. HYZAAR [Concomitant]
  3. DIAMICRON [Concomitant]
  4. RILMENIDINE [Concomitant]

REACTIONS (4)
  - BRADYCARDIA [None]
  - CARDIAC FAILURE [None]
  - CEREBROVASCULAR ACCIDENT [None]
  - COMA [None]
